FAERS Safety Report 19286903 (Version 1)
Quarter: 2021Q2

REPORT INFORMATION
  Report Type: Spontaneous
  Country: US (occurrence: US)
  Receive Date: 20210521
  Receipt Date: 20210521
  Transmission Date: 20210717
  Serious: No
  Sender: FDA-Public Use
  Company Number: US-RADIUS HEALTH INC.-2020US001665

PATIENT
  Sex: Female

DRUGS (2)
  1. TYMLOS [Suspect]
     Active Substance: ABALOPARATIDE
     Dosage: UNK
     Dates: start: 20200831, end: 202009
  2. TYMLOS [Suspect]
     Active Substance: ABALOPARATIDE
     Indication: OSTEOPOROSIS POSTMENOPAUSAL
     Dosage: 80 MCG, DAILY
     Route: 058
     Dates: start: 20200831

REACTIONS (7)
  - Nervousness [Recovered/Resolved]
  - Injection site bruising [Unknown]
  - Injection site pain [Unknown]
  - Chills [Recovered/Resolved]
  - Malaise [Recovered/Resolved]
  - Nausea [Recovered/Resolved]
  - Product administered at inappropriate site [Unknown]
